FAERS Safety Report 8454239-9 (Version None)
Quarter: 2012Q2

REPORT INFORMATION
  Report Type: 
  Country: None (occurrence: None)
  Receive Date: 20120620
  Receipt Date: 20110825
  Transmission Date: 20120825
  Serious: No
  Sender: FDA-Public Use
  Company Number: US-AMGEN-USASP2011043550

PATIENT
  Sex: Female

DRUGS (18)
  1. PREDNISONE TAB [Concomitant]
     Dosage: 5 MG, UNK
  2. BACTRIM [Concomitant]
     Dosage: 400 MG, UNK
  3. METFORMIN HCL [Concomitant]
     Dosage: 500 MG, UNK
  4. CYMBALTA [Concomitant]
     Dosage: 20 MG, UNK
  5. AMBIEN CR [Concomitant]
     Dosage: 12.5 MG, UNK
  6. VERAPAMIL [Concomitant]
     Dosage: 120 MG, UNK
  7. OXYCODONE HCL AND ACETAMINOPHEN [Concomitant]
     Dosage: 10 MG, UNK
  8. HUMALOG PEN MIX [Concomitant]
     Dosage: 100 IU, UNK
  9. LANSOPRAZOLE [Concomitant]
     Dosage: 15 MG, UNK
  10. OXYCODONE HCL [Concomitant]
     Dosage: 5 MG, UNK
  11. LYRICA [Concomitant]
     Dosage: 100 MG, UNK
  12. AMITRIPTYLINE HCL [Concomitant]
     Dosage: 10 MG, UNK
  13. LANTUS [Concomitant]
     Dosage: UNK
  14. GEMFIBROZIL [Concomitant]
     Dosage: 600 MG, UNK
  15. GABAPENTIN [Concomitant]
     Dosage: 300 MG, UNK
  16. GLIPIZIDE [Concomitant]
     Dosage: 10 MG, UNK
  17. ENBREL [Suspect]
     Indication: PRODUCT USED FOR UNKNOWN INDICATION
     Dosage: 50 MG, QWK
     Dates: start: 20110701
  18. PEPTO BISMOL                       /00139305/ [Concomitant]
     Dosage: 262 MG, UNK

REACTIONS (2)
  - SKIN ULCER [None]
  - KIDNEY INFECTION [None]
